FAERS Safety Report 5485680-4 (Version None)
Quarter: 2007Q4

REPORT INFORMATION
  Report Type: 
  Country: None (occurrence: None)
  Receive Date: 20071015
  Receipt Date: 20071003
  Transmission Date: 20080405
  Serious: Yes (Hospitalization)
  Sender: FDA-Public Use
  Company Number: JP-AMGEN-US210609

PATIENT
  Sex: Female
  Weight: 49.9 kg

DRUGS (3)
  1. ENBREL [Suspect]
     Indication: JUVENILE ARTHRITIS
     Route: 058
     Dates: start: 20060301
  2. METHIONINE [Concomitant]
     Indication: PROPHYLAXIS
     Route: 048
     Dates: end: 20070130
  3. IBUPROFEN [Concomitant]
     Indication: JUVENILE ARTHRITIS
     Dosage: 300 TO 1200 MG DAILY
     Route: 048
     Dates: end: 20070130

REACTIONS (1)
  - BACK PAIN [None]
